FAERS Safety Report 21637736 (Version 1)
Quarter: 2022Q4

REPORT INFORMATION
  Report Type: Report from Study
  Country: CA (occurrence: CA)
  Receive Date: 20221124
  Receipt Date: 20221124
  Transmission Date: 20230113
  Serious: Yes (Other)
  Sender: FDA-Public Use
  Company Number: CA-SAMSUNG BIOEPIS-SB-2022-29785

PATIENT
  Age: 18 Year
  Sex: Female

DRUGS (1)
  1. RENFLEXIS [Suspect]
     Active Substance: INFLIXIMAB-ABDA
     Indication: Colitis
     Route: 042
     Dates: start: 2022

REACTIONS (2)
  - Osteomyelitis [Not Recovered/Not Resolved]
  - Product use in unapproved indication [Unknown]
